FAERS Safety Report 4585364-0 (Version None)
Quarter: 2005Q1

REPORT INFORMATION
  Report Type: 
  Country: None (occurrence: None)
  Receive Date: 20050217
  Receipt Date: 20050121
  Transmission Date: 20050727
  Serious: Yes (Other)
  Sender: FDA-Public Use
  Company Number: 200510271JP

PATIENT
  Age: 84 Year
  Sex: Male
  Weight: 51 kg

DRUGS (1)
  1. KETEK [Suspect]
     Indication: NASOPHARYNGITIS
     Dosage: DOSE: 2TABLETS
     Route: 048
     Dates: start: 20041108, end: 20041112

REACTIONS (4)
  - ABDOMINAL PAIN UPPER [None]
  - CHILLS [None]
  - CONVULSION [None]
  - PYREXIA [None]
